FAERS Safety Report 10072163 (Version 1)
Quarter: 2014Q2

REPORT INFORMATION
  Report Type: Report from Study
  Country: AR (occurrence: AR)
  Receive Date: 20140411
  Receipt Date: 20140411
  Transmission Date: 20141212
  Serious: Yes (Death)
  Sender: FDA-Public Use
  Company Number: AR-ORION CORPORATION ORION PHARMA-ENTC2014-0129

PATIENT
  Sex: Male

DRUGS (1)
  1. STALEVO [Suspect]
     Indication: PARKINSON^S DISEASE
     Dosage: STRENGTH: 100/150 MG
     Route: 048

REACTIONS (1)
  - Hepatic cancer [Fatal]
